FAERS Safety Report 17393739 (Version 3)
Quarter: 2020Q2

REPORT INFORMATION
  Report Type: Report from Study
  Country: None (occurrence: IT)
  Receive Date: 20200209
  Receipt Date: 20200420
  Transmission Date: 20200713
  Serious: Yes (Hospitalization)
  Sender: FDA-Public Use
  Company Number: IT-ABBVIE-20K-083-3261852-00

PATIENT
  Age: 56 Year
  Sex: Male
  Weight: 88 kg

DRUGS (8)
  1. ACIDO ALENDRONICO [Concomitant]
     Active Substance: ALENDRONIC ACID
     Indication: OSTEOPOROSIS
     Route: 048
     Dates: start: 20160614
  2. CLOPIDOGREL CLORIDRATO [Concomitant]
     Indication: ATRIAL SEPTAL DEFECT
     Route: 048
     Dates: start: 20161111
  3. CARDIOASPIRINA [Concomitant]
     Active Substance: ASPIRIN
     Indication: PARADOXICAL EMBOLISM
     Route: 048
     Dates: start: 20161109
  4. ASACOL [Concomitant]
     Active Substance: MESALAMINE
     Indication: COLITIS ULCERATIVE
     Route: 054
     Dates: start: 20200113
  5. BISOPROLOLO [Concomitant]
     Active Substance: BISOPROLOL FUMARATE
     Indication: ATRIAL SEPTAL DEFECT
     Route: 048
     Dates: start: 20160614
  6. HUMIRA [Suspect]
     Active Substance: ADALIMUMAB
     Indication: COLITIS ULCERATIVE
     Route: 058
     Dates: start: 20150630, end: 20161005
  7. CHOLECALCIFEROL [Concomitant]
     Active Substance: CHOLECALCIFEROL
     Indication: OSTEOPOROSIS
     Route: 048
     Dates: start: 20150813
  8. TOPSTER [Concomitant]
     Indication: COLITIS ULCERATIVE
     Dosage: ALTERNATE DAYS
     Route: 054
     Dates: start: 20190410

REACTIONS (1)
  - Cholangitis [Recovered/Resolved]

NARRATIVE: CASE EVENT DATE: 20191230
